FAERS Safety Report 5225785-6 (Version None)
Quarter: 2007Q1

REPORT INFORMATION
  Report Type: 
  Country: None (occurrence: None)
  Receive Date: 20070131
  Receipt Date: 20070131
  Transmission Date: 20070707
  Serious: Yes (Other)
  Sender: FDA-Public Use
  Company Number: None

PATIENT
  Age: 81 Year
  Sex: Female

DRUGS (9)
  1. REVLIMID [Suspect]
     Indication: MULTIPLE MYELOMA
     Dosage: 10MG DAILY 21D/28D PO
     Route: 048
  2. METOPROLO [Concomitant]
  3. KLOR-CON [Concomitant]
  4. DEXAMETHASONE [Concomitant]
  5. BUSPIRONE HCL [Concomitant]
  6. AVELOX [Concomitant]
  7. DOXEPIN HCL [Concomitant]
  8. METHADONE HCL [Concomitant]
  9. ALBUTEROL [Concomitant]

REACTIONS (3)
  - NEUTROPENIA [None]
  - PNEUMONIA [None]
  - THROMBOCYTOPENIA [None]
